FAERS Safety Report 4834933-9 (Version None)
Quarter: 2005Q4

REPORT INFORMATION
  Report Type: 
  Country: None (occurrence: None)
  Receive Date: 20051122
  Receipt Date: 20050727
  Transmission Date: 20060501
  Serious: Yes (Death, Hospitalization, Other)
  Sender: FDA-Public Use
  Company Number: JP-BRISTOL-MYERS SQUIBB COMPANY-13060702

PATIENT
  Age: 96 Year
  Sex: Female

DRUGS (9)
  1. GATIFLOXACIN [Suspect]
     Indication: CYSTITIS
     Route: 048
     Dates: start: 20050719, end: 20050720
  2. FLOMOX [Concomitant]
     Indication: CYSTITIS
     Route: 048
     Dates: start: 20050707, end: 20050714
  3. CRAVIT [Concomitant]
     Indication: CYSTITIS
     Route: 048
     Dates: start: 20050714, end: 20050719
  4. TORSEMIDE [Concomitant]
     Route: 048
     Dates: start: 20050706
  5. HALFDIGOXIN [Concomitant]
     Route: 048
     Dates: start: 20050706
  6. VERAPAMIL [Concomitant]
     Route: 048
     Dates: start: 20050706
  7. UBIDECARENONE [Concomitant]
     Route: 048
     Dates: start: 20050706
  8. ISOSORBIDE MONONITRATE [Concomitant]
     Route: 048
     Dates: start: 20050706
  9. ATELEC [Concomitant]
     Route: 048
     Dates: start: 20050717

REACTIONS (11)
  - ATRIOVENTRICULAR BLOCK COMPLETE [None]
  - BLOOD PRESSURE INCREASED [None]
  - CARDIAC ARREST [None]
  - CARDIAC FAILURE [None]
  - CEREBRAL INFARCTION [None]
  - CONVULSION [None]
  - DEPRESSED LEVEL OF CONSCIOUSNESS [None]
  - HYPERKALAEMIA [None]
  - INFECTION [None]
  - NODAL RHYTHM [None]
  - RENAL FAILURE [None]
